APPROVED DRUG PRODUCT: MINOCYCLINE HYDROCHLORIDE
Active Ingredient: MINOCYCLINE HYDROCHLORIDE
Strength: EQ 80MG BASE
Dosage Form/Route: TABLET, EXTENDED RELEASE;ORAL
Application: A065485 | Product #007
Applicant: BARR LABORATORIES INC
Approved: Apr 26, 2017 | RLD: No | RS: No | Type: DISCN